FAERS Safety Report 20536600 (Version 2)
Quarter: 2022Q4

REPORT INFORMATION
  Report Type: Spontaneous
  Country: GB (occurrence: GB)
  Receive Date: 20220302
  Receipt Date: 20221130
  Transmission Date: 20230113
  Serious: Yes (Life-Threatening, Hospitalization)
  Sender: FDA-Public Use
  Company Number: None

PATIENT
  Age: 21 Year
  Sex: Male

DRUGS (1)
  1. IMODIUM [Suspect]
     Active Substance: LOPERAMIDE HYDROCHLORIDE
     Indication: Diarrhoea
     Dosage: 2G X 3 PER DAY
     Route: 048
     Dates: start: 20210725, end: 20210726

REACTIONS (9)
  - Loss of consciousness [Recovered/Resolved]
  - Respiratory arrest [Unknown]
  - Circulatory collapse [Unknown]
  - Loss of consciousness [Unknown]
  - Head banging [Unknown]
  - Limb injury [Unknown]
  - Hypersensitivity [Unknown]
  - Medication error [Unknown]
  - Off label use [Unknown]

NARRATIVE: CASE EVENT DATE: 20210725
